FAERS Safety Report 7747723-4 (Version None)
Quarter: 2011Q3

REPORT INFORMATION
  Report Type: 
  Country: None (occurrence: None)
  Receive Date: 20110913
  Receipt Date: 20110903
  Transmission Date: 20111222
  Serious: Yes (Other)
  Sender: FDA-Public Use
  Company Number: PHHY2011BR79768

PATIENT
  Sex: Female

DRUGS (3)
  1. METFORMIN HCL [Suspect]
     Route: 048
  2. LOSARTAN POTASSIUM [Suspect]
     Route: 048
  3. SIMVASTATIN [Suspect]
     Route: 048

REACTIONS (2)
  - BREAST CANCER [None]
  - ASTHMA [None]
